FAERS Safety Report 18956589 (Version 3)
Quarter: 2021Q3

REPORT INFORMATION
  Report Type: Spontaneous
  Country: US (occurrence: US)
  Receive Date: 20210302
  Receipt Date: 20210714
  Transmission Date: 20211014
  Serious: Yes (Life-Threatening, Hospitalization, Other)
  Sender: FDA-Public Use
  Company Number: US-DRREDDYS-USA/USA/21/0132510

PATIENT
  Sex: Male

DRUGS (8)
  1. VENLAFAXINE HYDROCHLORIDE ER CAPSULES, 150 MG (BASE) [Interacting]
     Active Substance: VENLAFAXINE HYDROCHLORIDE
     Indication: BIPOLAR DISORDER
  2. GABAPENTIN. [Interacting]
     Active Substance: GABAPENTIN
     Indication: BIPOLAR DISORDER
     Route: 064
  3. GABAPENTIN. [Interacting]
     Active Substance: GABAPENTIN
     Indication: POST-TRAUMATIC STRESS DISORDER
  4. BUPROPION HYDROCHLORIDE. [Interacting]
     Active Substance: BUPROPION HYDROCHLORIDE
     Indication: POST-TRAUMATIC STRESS DISORDER
     Route: 064
  5. QUETIAPINE FUMARATE TABLETS [Suspect]
     Active Substance: QUETIAPINE FUMARATE
     Indication: POST-TRAUMATIC STRESS DISORDER
     Route: 064
  6. QUETIAPINE FUMARATE TABLETS [Interacting]
     Active Substance: QUETIAPINE FUMARATE
     Indication: BIPOLAR DISORDER
  7. BUPROPION HYDROCHLORIDE. [Interacting]
     Active Substance: BUPROPION HYDROCHLORIDE
     Indication: BIPOLAR DISORDER
  8. VENLAFAXINE HYDROCHLORIDE ER CAPSULES, 150 MG (BASE) [Interacting]
     Active Substance: VENLAFAXINE HYDROCHLORIDE
     Indication: POST-TRAUMATIC STRESS DISORDER
     Route: 064

REACTIONS (7)
  - Encephalopathy [Recovered/Resolved]
  - Neonatal toxicity [Recovered/Resolved]
  - Hyperreflexia [Recovered/Resolved]
  - Hypotonia neonatal [Recovered/Resolved]
  - Cerebral disorder [Recovered/Resolved]
  - Drug interaction [Recovered/Resolved]
  - Foetal exposure during pregnancy [Recovered/Resolved]
